FAERS Safety Report 10662510 (Version 1)
Quarter: 2014Q4

REPORT INFORMATION
  Report Type: Spontaneous
  Country: US (occurrence: None)
  Receive Date: 20141217
  Receipt Date: 20141217
  Transmission Date: 20150529
  Serious: Yes (Other)
  Sender: FDA-Public Use
  Company Number: None

PATIENT
  Age: 39 Year
  Sex: Female
  Weight: 56.7 kg

DRUGS (1)
  1. CIPRO [Suspect]
     Active Substance: CIPROFLOXACIN HYDROCHLORIDE
     Indication: SINUSITIS
     Dosage: 1 PILL
     Route: 048
     Dates: start: 20030308, end: 20140308

REACTIONS (8)
  - Anxiety [None]
  - Neuropathy peripheral [None]
  - Vomiting [None]
  - Dry mouth [None]
  - Nausea [None]
  - Insomnia [None]
  - Pain [None]
  - Dry eye [None]

NARRATIVE: CASE EVENT DATE: 20130307
